FAERS Safety Report 9653340 (Version 1)
Quarter: 2013Q4

REPORT INFORMATION
  Report Type: Spontaneous
  Country: US (occurrence: US)
  Receive Date: 20131029
  Receipt Date: 20131029
  Transmission Date: 20140711
  Serious: Yes (Hospitalization)
  Sender: FDA-Public Use
  Company Number: US-ABBVIE-13P-163-1160737-00

PATIENT
  Age: 54 Year
  Sex: Female
  Weight: 88.98 kg

DRUGS (4)
  1. SYNTHROID [Suspect]
     Indication: HYPOTHYROIDISM
     Dates: start: 2009
  2. SYNTHROID [Suspect]
  3. CYTOMEL [Concomitant]
     Indication: HYPOTHYROIDISM
  4. WELLBUTRIN [Concomitant]
     Indication: ANXIETY

REACTIONS (3)
  - Coronary artery occlusion [Not Recovered/Not Resolved]
  - Myocardial infarction [Recovering/Resolving]
  - Fatigue [Not Recovered/Not Resolved]
